FAERS Safety Report 9841244 (Version 1)
Quarter: 2013Q4

REPORT INFORMATION
  Report Type: Spontaneous
  Country: US (occurrence: None)
  Receive Date: 20131219
  Receipt Date: 20131219
  Transmission Date: 20140711
  Serious: Yes (Other)
  Sender: FDA-Public Use
  Company Number: 163-20785-12102389

PATIENT
  Age: 55 Year
  Sex: Female

DRUGS (6)
  1. THALOMID [Suspect]
     Indication: PLASMA CELL MYELOMA
     Dosage: 1 IN 1 D
     Route: 048
     Dates: start: 201202, end: 2012
  2. METOPROLOL [Concomitant]
  3. ZOLOFT [Concomitant]
  4. ACYCLOVIR [Concomitant]
  5. ASPIRIN [Concomitant]
  6. LABETALOL [Concomitant]

REACTIONS (1)
  - Plasmacytoma [None]
